FAERS Safety Report 6585045-8 (Version None)
Quarter: 2010Q1

REPORT INFORMATION
  Report Type: 
  Country: None (occurrence: None)
  Receive Date: 20100217
  Receipt Date: 20100208
  Transmission Date: 20100710
  Serious: Yes (Other)
  Sender: FDA-Public Use
  Company Number: US-SANOFI-AVENTIS-2010SA008069

PATIENT
  Age: 58 Year
  Sex: Male
  Weight: 81.6 kg

DRUGS (7)
  1. LOVENOX [Suspect]
     Indication: ACTIVATED PROTEIN C RESISTANCE
     Route: 058
     Dates: start: 20070101
  2. LOVENOX [Suspect]
     Route: 058
     Dates: start: 20070101
  3. TRICOR [Concomitant]
  4. SIMVASTATIN [Concomitant]
  5. ASPIRIN [Concomitant]
     Route: 065
  6. ADVAIR DISKUS 100/50 [Concomitant]
     Indication: ASTHMA
  7. PRILOSEC [Concomitant]

REACTIONS (4)
  - CONDITION AGGRAVATED [None]
  - OSTEOPENIA [None]
  - OSTEOPOROSIS [None]
  - STRESS FRACTURE [None]
